FAERS Safety Report 7966511-7 (Version None)
Quarter: 2011Q4

REPORT INFORMATION
  Report Type: 
  Country: None (occurrence: None)
  Receive Date: 20111208
  Receipt Date: 20111206
  Transmission Date: 20120403
  Serious: Yes (Hospitalization, Other)
  Sender: FDA-Public Use
  Company Number: US-MERCK-1109USA00859

PATIENT
  Age: 74 Year
  Sex: Female
  Weight: 78 kg

DRUGS (2)
  1. FOSAMAX [Suspect]
     Indication: OSTEOPOROSIS
     Route: 048
     Dates: start: 20020101, end: 20070101
  2. BONIVA [Suspect]
     Indication: OSTEOPOROSIS
     Route: 065

REACTIONS (17)
  - SPINAL COLUMN STENOSIS [None]
  - BLOOD CHOLESTEROL INCREASED [None]
  - HYPERTENSION [None]
  - ARTHRALGIA [None]
  - INTERVERTEBRAL DISC DEGENERATION [None]
  - HIP FRACTURE [None]
  - SPONDYLOLISTHESIS [None]
  - CEREBRAL SMALL VESSEL ISCHAEMIC DISEASE [None]
  - FEMUR FRACTURE [None]
  - DIABETES MELLITUS [None]
  - FALL [None]
  - ATAXIA [None]
  - ANKLE FRACTURE [None]
  - TIBIA FRACTURE [None]
  - AMNESIA [None]
  - NERVOUSNESS [None]
  - INJURY [None]
